FAERS Safety Report 24130291 (Version 1)
Quarter: 2024Q3

REPORT INFORMATION
  Report Type: Other
  Country: GB (occurrence: GB)
  Receive Date: 20240724
  Receipt Date: 20240724
  Transmission Date: 20241017
  Serious: Yes (Other)
  Sender: IPCA
  Company Number: GB-MHRA-TPP22019618C8887069YC1720438504476

PATIENT

DRUGS (19)
  1. FUROSEMIDE [Suspect]
     Active Substance: FUROSEMIDE
     Indication: Ill-defined disorder
     Dosage: ONE TABLET DAILY (TO REMOVE FLUID EXCESS)
     Route: 065
     Dates: start: 20240625
  2. DOXYCYCLINE [Concomitant]
     Active Substance: DOXYCYCLINE\DOXYCYCLINE HYCLATE
     Indication: Ill-defined disorder
     Dosage: TAKE TWO NOW THEN ONE DAILY FOR 4 DAYS TO TREAT...
     Route: 065
     Dates: start: 20240513, end: 20240518
  3. STERI-STRIP [Concomitant]
     Indication: Ill-defined disorder
     Dosage: USE AS DIRECTED
     Route: 065
     Dates: start: 20240513, end: 20240514
  4. STERILE [Concomitant]
     Indication: Ill-defined disorder
     Dosage: USE AS DIRECTED
     Route: 065
     Dates: start: 20240513, end: 20240514
  5. ETANERCEPT [Concomitant]
     Active Substance: ETANERCEPT
     Indication: Ill-defined disorder
     Dosage: WEEKLY
     Route: 065
     Dates: start: 20240529
  6. APIXABAN [Concomitant]
     Active Substance: APIXABAN
     Indication: Ill-defined disorder
     Dosage: TAKE ONE TABLET TWICE A DAY
     Route: 065
     Dates: start: 20240626
  7. BUMETANIDE [Concomitant]
     Active Substance: BUMETANIDE
     Indication: Ill-defined disorder
     Dosage: ONE TABLET DAILY (TO REMOVE FLUID EXCESS)
     Route: 065
     Dates: start: 20240705
  8. FLUCLOXACILLIN [Concomitant]
     Active Substance: FLUCLOXACILLIN
     Indication: Ill-defined disorder
     Dosage: ONE CAPSULE FOUR TIMES A DAY (ANTIBIOTIC)
     Route: 065
     Dates: start: 20240705
  9. SIMVASTATIN [Concomitant]
     Active Substance: SIMVASTATIN
     Indication: Ill-defined disorder
     Dosage: ONE TO BE TAKEN DAILY
     Route: 065
     Dates: start: 20090206
  10. LISINOPRIL [Concomitant]
     Active Substance: LISINOPRIL
     Indication: Ill-defined disorder
     Dosage: ONE TO BE TAKEN DAILY
     Route: 065
     Dates: start: 20110414
  11. PREGABALIN [Concomitant]
     Active Substance: PREGABALIN
     Indication: Ill-defined disorder
     Dosage: ONE TO BE TAKEN TWICE A DAY
     Route: 065
     Dates: start: 20140903
  12. FOLIC ACID [Concomitant]
     Active Substance: FOLIC ACID
     Indication: Ill-defined disorder
     Dosage: 2 WEEKLY.DO NOT TAKE ON THE SAME DAY AS METHOTR...
     Route: 065
     Dates: start: 20170322
  13. OXYCODONE HYDROCHLORIDE [Concomitant]
     Active Substance: OXYCODONE HYDROCHLORIDE
     Indication: Ill-defined disorder
     Dosage: TAKE 1-3 TABLETS EVERY 12 HRS
     Route: 065
     Dates: start: 20180403
  14. OMEPRAZOLE [Concomitant]
     Active Substance: OMEPRAZOLE
     Indication: Ill-defined disorder
     Dosage: TAKE ONE DAILY
     Route: 065
     Dates: start: 20200211
  15. FENTANYL [Concomitant]
     Active Substance: FENTANYL\FENTANYL CITRATE
     Indication: Ill-defined disorder
     Dosage: APPLY ONE PATCH, CHANGE EVERY THREE DAYS (FENTA...
     Route: 065
     Dates: start: 20220905
  16. ALENDRONIC ACID [Concomitant]
     Active Substance: ALENDRONIC ACID
     Indication: Ill-defined disorder
     Dosage: ONE TABLET WEEKLY ON THE SAME DAY EACH WEEK AS ...
     Route: 065
     Dates: start: 20221012
  17. METHOTREXATE SODIUM [Concomitant]
     Active Substance: METHOTREXATE SODIUM
     Indication: Ill-defined disorder
     Dosage: USE AS DIRECTED ONCE WEEKLY.
     Route: 065
     Dates: start: 20240404
  18. SHARPSGUARD [Concomitant]
     Indication: Ill-defined disorder
     Dosage: USE AS DIRECTED
     Route: 065
     Dates: start: 20240404
  19. BISOPROLOL [Concomitant]
     Active Substance: BISOPROLOL\BISOPROLOL FUMARATE
     Indication: Ill-defined disorder
     Dosage: ONE TABLET DAILY (BETA-BLOCKER TO SLOW ATRIAL F...
     Route: 065
     Dates: start: 20240625

REACTIONS (2)
  - Aphthous ulcer [Recovered/Resolved]
  - Dry mouth [Unknown]
